FAERS Safety Report 9522038 (Version 1)
Quarter: 2013Q3

REPORT INFORMATION
  Report Type: Spontaneous
  Country: US (occurrence: None)
  Receive Date: 20130823
  Receipt Date: 20130823
  Transmission Date: 20140515
  Serious: Yes (Hospitalization)
  Sender: FDA-Public Use
  Company Number: 2013PROUSA03025

PATIENT
  Age: 68 Year
  Sex: Male
  Weight: 88.4 kg

DRUGS (7)
  1. PROVENGE (SIPULEUCEL-T) SUSPENSION, 250ML [Suspect]
     Indication: PROSTATE CANCER METASTATIC
     Route: 042
     Dates: start: 20130614, end: 20130614
  2. CASODEX [Concomitant]
  3. LIPITOR (ATORVASTATIN CALCIUM) [Concomitant]
  4. LUPRON [Concomitant]
  5. OSCAL [Concomitant]
  6. CENTRUM SILVER (ASCORBIC ACID, BIOTIN, BORON, CALCIUM, CALCIUM PANTOTHENATE, CHLORINE, CHROMIUM, COLECALCIFEROL, COPPER, CYANOCOBALAMIN, FOLIC ACID, IODINE, MAGNESIUM, MANGANESE, MOLYBDENUM, NICKEL, NICOTINAMIDE, PHOSPHORUS, PHYTOMENADIONE, POTASSIUM, PYRIDOXINE HYDROCHLORIDE, RETINOL, RIBOFLAVIN, SELENIUM, SILICON DIOXIDE, THIAMINE HYDROCHLORIDE, TOCOPHEROL, VANADIN, ZINC) [Concomitant]
  7. VITAMIN C [Concomitant]

REACTIONS (2)
  - Staphylococcal bacteraemia [None]
  - Product sterility lacking [None]
